FAERS Safety Report 7125914-3 (Version None)
Quarter: 2010Q4

REPORT INFORMATION
  Report Type: 
  Country: None (occurrence: None)
  Receive Date: 20101129
  Receipt Date: 20101117
  Transmission Date: 20110411
  Serious: Yes (Hospitalization, Other)
  Sender: FDA-Public Use
  Company Number: US-JNJFOC-20100904847

PATIENT
  Sex: Female
  Weight: 61.24 kg

DRUGS (17)
  1. FENTANYL-100 [Suspect]
     Indication: BACK PAIN
     Dosage: NDC#0781-7242-55
     Route: 062
  2. FENTANYL-100 [Suspect]
     Dosage: NDC#0781-7241-55
     Route: 062
  3. FENTANYL-100 [Suspect]
     Indication: SPINAL COLUMN STENOSIS
     Dosage: NDC#0781-7242-55
     Route: 062
  4. FENTANYL-100 [Suspect]
     Dosage: NDC#0781-7241-55
     Route: 062
  5. DOXAZOSIN MESYLATE [Concomitant]
     Indication: HYPERTENSION
     Route: 048
  6. VERAPAMIL [Concomitant]
     Indication: HYPERTENSION
     Route: 048
  7. FUROSEMIDE [Concomitant]
     Indication: DIURETIC THERAPY
     Dosage: 20 MG EVERY OTHER DAY TWICE
     Route: 048
  8. FUROSEMIDE [Concomitant]
     Route: 048
  9. FUROSEMIDE [Concomitant]
     Dosage: 20 MG (2 TABLET) EVERY OTHER DAY TWICE
     Route: 048
  10. FUROSEMIDE [Concomitant]
     Indication: HYPERTENSION
     Dosage: 20 MG (2 TABLET) EVERY OTHER DAY TWICE
     Route: 048
  11. FUROSEMIDE [Concomitant]
     Route: 048
  12. FUROSEMIDE [Concomitant]
     Dosage: 20 MG EVERY OTHER DAY TWICE
     Route: 048
  13. LISINOPRIL [Concomitant]
     Indication: CARDIAC DISORDER
     Route: 048
  14. NORTRIPTYLINE HCL [Concomitant]
     Indication: BREAKTHROUGH PAIN
     Route: 048
  15. HYDROCODONE [Concomitant]
     Indication: BREAKTHROUGH PAIN
     Dosage: 2.5/500 MG
     Route: 048
  16. ACETAMINOPHEN [Concomitant]
     Indication: BREAKTHROUGH PAIN
     Route: 048
  17. SIMVASTATIN [Concomitant]
     Indication: BLOOD CHOLESTEROL INCREASED
     Route: 048

REACTIONS (9)
  - ABDOMINAL PAIN UPPER [None]
  - CARDIAC DISORDER [None]
  - CARDIAC MURMUR [None]
  - CHOLELITHIASIS [None]
  - DIARRHOEA [None]
  - FALL [None]
  - INFECTION [None]
  - PRODUCT PACKAGING QUANTITY ISSUE [None]
  - VOMITING [None]
